FAERS Safety Report 21979084 (Version 5)
Quarter: 2023Q2

REPORT INFORMATION
  Report Type: Report from Study
  Country: CA (occurrence: None)
  Receive Date: 20230210
  Receipt Date: 20230518
  Transmission Date: 20230722
  Serious: Yes (Hospitalization)
  Sender: FDA-Public Use
  Company Number: CA-Ultragenyx Pharmaceutical Inc.-CA-UGNX-23-00104

PATIENT
  Age: 2 Year
  Sex: Female

DRUGS (10)
  1. DOJOLVI [Suspect]
     Active Substance: TRIHEPTANOIN
     Indication: Very long-chain acyl-coenzyme A dehydrogenase deficiency
     Dosage: AT 9 ML, EVERY 6 HOURS VIA G-TUBE
     Dates: start: 20230117, end: 20230119
  2. DOJOLVI [Suspect]
     Active Substance: TRIHEPTANOIN
     Dosage: AT 5 ML, EVERY 6 HOURS VIA G-TUBE
     Dates: start: 20230119, end: 20230121
  3. LIPISTART POWDER [Concomitant]
     Indication: Very long-chain acyl-coenzyme A dehydrogenase deficiency
     Dosage: 145 G, ONCE PER DAY, INTRAGASTRIC
     Dates: start: 20220831, end: 20230116
  4. LIPISTART POWDER [Concomitant]
     Dosage: 145 G, ONCE PER DAY, INTRAGASTRIC
     Dates: start: 20230121
  5. MEDIUM-CHAIN TRIGLYCERIDES [Concomitant]
     Active Substance: MEDIUM-CHAIN TRIGLYCERIDES
     Indication: Very long-chain acyl-coenzyme A dehydrogenase deficiency
     Dosage: 45 ML, ONCE PER DAY, INTRAGASTRIC
     Dates: start: 20220831, end: 20230116
  6. SOLCARB POWDER [Concomitant]
     Indication: Very long-chain acyl-coenzyme A dehydrogenase deficiency
     Dosage: 30 G, ONCE PER DAY, INTRAGASTRIC
     Dates: start: 20220831, end: 20230116
  7. SOLCARB POWDER [Concomitant]
     Dosage: 83 G, ONCE PER DAY, INTRAGASTRIC
     Dates: start: 20230117, end: 20230120
  8. SOLCARB POWDER [Concomitant]
     Dosage: 28 G, ONCE PER DAY, INTRAGASTRIC
     Dates: start: 20230120, end: 20230121
  9. SOLCARB POWDER [Concomitant]
     Dosage: 30 G, ONCE PER DAY, INTRAGASTRIC
     Dates: start: 20230121
  10. POLYETHYLENE GLYCOL 3350 [Concomitant]
     Active Substance: POLYETHYLENE GLYCOL 3350
     Indication: Constipation
     Dosage: INTRAGASTRIC
     Dates: start: 2022

REACTIONS (2)
  - Vomiting [Recovered/Resolved]
  - Rhabdomyolysis [Recovered/Resolved]

NARRATIVE: CASE EVENT DATE: 20230117
